FAERS Safety Report 25713668 (Version 2)
Quarter: 2025Q3

REPORT INFORMATION
  Report Type: Spontaneous
  Country: GB (occurrence: GB)
  Receive Date: 20250822
  Receipt Date: 20250915
  Transmission Date: 20251020
  Serious: Yes (Other)
  Sender: ROCHE
  Company Number: GB-ROCHE-10000367545

PATIENT
  Age: 5 Year
  Sex: Male
  Weight: 22.7 kg

DRUGS (1)
  1. EMICIZUMAB [Suspect]
     Active Substance: EMICIZUMAB
     Indication: Factor VIII deficiency
     Route: 065
     Dates: start: 20200708

REACTIONS (2)
  - Magnetic resonance imaging abnormal [Unknown]
  - Bone marrow disorder [Recovered/Resolved]

NARRATIVE: CASE EVENT DATE: 20240521
